FAERS Safety Report 6857805-7 (Version None)
Quarter: 2010Q3

REPORT INFORMATION
  Report Type: 
  Country: None (occurrence: None)
  Receive Date: 20100719
  Receipt Date: 20080129
  Transmission Date: 20110219
  Serious: Yes (Other)
  Sender: FDA-Public Use
  Company Number: US-PFIZER INC-2008009707

PATIENT
  Sex: Male

DRUGS (2)
  1. CHANTIX [Suspect]
  2. MARIJUANA [Concomitant]

REACTIONS (1)
  - SUICIDAL BEHAVIOUR [None]
